FAERS Safety Report 7106322-8 (Version None)
Quarter: 2010Q4

REPORT INFORMATION
  Report Type: 
  Country: None (occurrence: None)
  Receive Date: 20101116
  Receipt Date: 20101105
  Transmission Date: 20110411
  Serious: Yes (Other)
  Sender: FDA-Public Use
  Company Number: DE-JNJFOC-20100908601

PATIENT
  Age: 86 Year
  Sex: Male

DRUGS (2)
  1. TAVANIC [Suspect]
     Indication: DYSURIA
     Route: 048
  2. TAVANIC [Suspect]
     Route: 048

REACTIONS (10)
  - ACCIDENTAL OVERDOSE [None]
  - AGITATION [None]
  - CHEST PAIN [None]
  - CONFUSIONAL STATE [None]
  - DYSPNOEA [None]
  - FEELING ABNORMAL [None]
  - HALLUCINATION [None]
  - MYALGIA [None]
  - NERVOUS SYSTEM DISORDER [None]
  - OEDEMA [None]
